FAERS Safety Report 6536639-7 (Version None)
Quarter: 2010Q1

REPORT INFORMATION
  Report Type: 
  Country: None (occurrence: None)
  Receive Date: 20100113
  Receipt Date: 20100104
  Transmission Date: 20100710
  Serious: Yes (Other)
  Sender: FDA-Public Use
  Company Number: NO-PFIZER INC-2010000158

PATIENT
  Sex: Male

DRUGS (3)
  1. INSPRA [Suspect]
     Dosage: 25 MG, UNK
     Route: 048
     Dates: start: 20090101
  2. INSPRA [Suspect]
     Dosage: 50 MG, UNK
     Route: 048
     Dates: start: 20100101
  3. INSULIN [Concomitant]

REACTIONS (1)
  - BLOOD GLUCOSE INCREASED [None]
